FAERS Safety Report 11123079 (Version 2)
Quarter: 2015Q2

REPORT INFORMATION
  Report Type: Spontaneous
  Country: US (occurrence: US)
  Receive Date: 20150519
  Receipt Date: 20150619
  Transmission Date: 20150821
  Serious: Yes (Hospitalization, Other)
  Sender: FDA-Public Use
  Company Number: US-009507513-1201USA00408

PATIENT
  Sex: Female

DRUGS (3)
  1. FOSAMAX [Suspect]
     Active Substance: ALENDRONATE SODIUM
     Dosage: 10 MG, UNK
     Route: 048
     Dates: start: 20000408, end: 20010828
  2. HERBS (UNSPECIFIED) (+) MINERALS (UNSPECIFIED) (+) VITAMINS (UNSPECIFI [Concomitant]
     Dosage: 2 DF, QD
     Dates: start: 2007
  3. FOSAMAX [Suspect]
     Active Substance: ALENDRONATE SODIUM
     Indication: BONE DENSITY DECREASED
     Dosage: 70 MG, QW
     Route: 048
     Dates: start: 20001102, end: 20071020

REACTIONS (35)
  - Femur fracture [Unknown]
  - Intramedullary rod insertion [Unknown]
  - Hypertension [Unknown]
  - Urinary tract infection [Unknown]
  - Osteoporosis [Unknown]
  - Diabetic neuropathy [Unknown]
  - Delirium [Unknown]
  - Hypothyroidism [Unknown]
  - Fracture malunion [Unknown]
  - Surgery [Unknown]
  - Hepatitis C [Unknown]
  - Depression [Unknown]
  - Symphysiolysis [Unknown]
  - Dystrophic calcification [Unknown]
  - Myositis ossificans [Unknown]
  - Vasculitis [Unknown]
  - Hyperkalaemia [Unknown]
  - Constipation [Recovered/Resolved]
  - Device breakage [Unknown]
  - Sedation [Unknown]
  - Osteomyelitis [Unknown]
  - Breast lump removal [Unknown]
  - Intramedullary rod insertion [Unknown]
  - Chronic kidney disease [Not Recovered/Not Resolved]
  - Osteoarthritis [Unknown]
  - Gout [Unknown]
  - Periprosthetic fracture [Unknown]
  - Osteomyelitis bacterial [Unknown]
  - Type 2 diabetes mellitus [Unknown]
  - Joint effusion [Unknown]
  - Skin lesion [Not Recovered/Not Resolved]
  - Pain in extremity [Unknown]
  - Fracture debridement [Unknown]
  - Blood glucose decreased [Unknown]
  - Tonsillectomy [Unknown]

NARRATIVE: CASE EVENT DATE: 200703
